FAERS Safety Report 8975182 (Version 1)
Quarter: 2012Q4

REPORT INFORMATION
  Report Type: 
  Country: DE (occurrence: DE)
  Receive Date: 20121219
  Receipt Date: 20121219
  Transmission Date: 20130627
  Serious: Yes (Hospitalization)
  Sender: FDA-Public Use
  Company Number: DE-TEVA-376845USA

PATIENT
  Sex: Male

DRUGS (1)
  1. TREANDA [Suspect]
     Indication: CHRONIC LYMPHOCYTIC LEUKAEMIA
     Dosage: 100 mg mono
     Route: 042

REACTIONS (3)
  - Pancytopenia [Recovered/Resolved]
  - Sepsis [Recovered/Resolved]
  - Respiratory moniliasis [Recovered/Resolved]
